FAERS Safety Report 5249243-8 (Version None)
Quarter: 2007Q1

REPORT INFORMATION
  Report Type: 
  Country: None (occurrence: None)
  Receive Date: 20070228
  Receipt Date: 20070222
  Transmission Date: 20070707
  Serious: Yes (Other)
  Sender: FDA-Public Use
  Company Number: US-JNJFOC-20070205768

PATIENT
  Sex: Male

DRUGS (1)
  1. ULTRAM SR [Suspect]
     Indication: PAIN
     Route: 048

REACTIONS (1)
  - PARALYSIS [None]
